FAERS Safety Report 19486176 (Version 1)
Quarter: 2021Q3

REPORT INFORMATION
  Report Type: Spontaneous
  Country: FR (occurrence: FR)
  Receive Date: 20210702
  Receipt Date: 20210702
  Transmission Date: 20211014
  Serious: Yes (Other)
  Sender: FDA-Public Use
  Company Number: NVSC2021FR139587

PATIENT
  Age: 44 Year
  Sex: Female

DRUGS (3)
  1. BISOPROLOL [Suspect]
     Active Substance: BISOPROLOL
     Dosage: 10 MG
     Route: 048
  2. BISOPROLOL [Suspect]
     Active Substance: BISOPROLOL
     Indication: HYPERTENSION
     Dosage: 10 MG
     Route: 048
  3. BISOPROLOL [Suspect]
     Active Substance: BISOPROLOL
     Dosage: 10 MG (BISOPROLOL BIOGARAN)
     Route: 048

REACTIONS (5)
  - Headache [Unknown]
  - Renal pain [Unknown]
  - Intracranial pressure increased [Unknown]
  - Drug ineffective [Unknown]
  - Blood pressure increased [Unknown]
